FAERS Safety Report 16741991 (Version 1)
Quarter: 2019Q3

REPORT INFORMATION
  Report Type: Spontaneous
  Country: GB (occurrence: GB)
  Receive Date: 20190826
  Receipt Date: 20190826
  Transmission Date: 20191005
  Serious: Yes (Disabling)
  Sender: FDA-Public Use
  Company Number: GB-TEVA-2019-GB-1096601

PATIENT
  Age: 36 Year
  Sex: Female
  Weight: 103 kg

DRUGS (8)
  1. FOSTAIR [Concomitant]
     Active Substance: BECLOMETHASONE\FORMOTEROL
     Dosage: 4 DOSAGE FORMS, AS A PREVENTER,  CAN TAKE ...
     Dates: start: 20190405
  2. PREDNISOLONE. [Concomitant]
     Active Substance: PREDNISOLONE
     Dosage: 6 DOSAGE FORMS, FOR 5 DAYS
     Dates: start: 20190724
  3. CERAZETTE [Concomitant]
     Dosage: 1 DOSAGE FORMS
     Dates: start: 20190405
  4. VENTOLIN [Concomitant]
     Active Substance: ALBUTEROL SULFATE
     Dosage: 2 DOSAGE FORMS, FOUR TIMES A DAY (FOR ASTHMA/C...
     Dates: start: 20190108
  5. OILATUM [Concomitant]
     Dosage: APPLY TO THE AFFECTED AREAS AS DIRECTED.
     Dates: start: 20190205
  6. LAMOTRIGINE. [Suspect]
     Active Substance: LAMOTRIGINE
     Dosage: 25 MILLIGRAM, TAKE ONE AT NIGHT FOR 2 WEEKS THEN TAKE TWO AT ...
     Dates: start: 20190719
  7. FEXOFENADINE [Concomitant]
     Active Substance: FEXOFENADINE HYDROCHLORIDE
     Dosage: 1 DOSAGE FORMS
     Dates: start: 20190724
  8. SINGULAIR [Concomitant]
     Active Substance: MONTELUKAST SODIUM
     Dosage: 1 DOSAGE FORMS, AT NIGHT
     Dates: start: 20190108

REACTIONS (2)
  - Mouth ulceration [Unknown]
  - Oral mucosal blistering [Unknown]
